FAERS Safety Report 9277722 (Version 2)
Quarter: 2013Q4

REPORT INFORMATION
  Report Type: Spontaneous
  Country: DE (occurrence: DE)
  Receive Date: 20130508
  Receipt Date: 20131107
  Transmission Date: 20140711
  Serious: Yes (Hospitalization)
  Sender: FDA-Public Use
  Company Number: PHHY2013DE044189

PATIENT
  Sex: Female

DRUGS (4)
  1. RASILEZ [Suspect]
     Indication: HYPERTENSION
     Dosage: 0.5 DF (300 MG), QD
     Dates: start: 20120101, end: 20120304
  2. RASILEZ [Interacting]
     Dosage: 1 DF (300MG), QD
     Dates: start: 20120304, end: 20120620
  3. RASILEZ [Interacting]
     Dosage: 1 DF (150 MG),  QD
     Dates: start: 20120621
  4. THYRONAJOD [Interacting]
     Dosage: 25 UG, DAILY

REACTIONS (9)
  - Angina pectoris [Recovered/Resolved]
  - Electrocardiogram abnormal [Unknown]
  - Spider vein [Unknown]
  - Drug interaction [Unknown]
  - Dysgeusia [Recovered/Resolved]
  - Blood pressure inadequately controlled [Recovered/Resolved]
  - Faeces soft [Not Recovered/Not Resolved]
  - Pruritus [Not Recovered/Not Resolved]
  - Wrong technique in drug usage process [Unknown]
